FAERS Safety Report 5919405-2 (Version None)
Quarter: 2008Q3

REPORT INFORMATION
  Report Type: 
  Country: None (occurrence: None)
  Receive Date: 20080909
  Receipt Date: 20070319
  Transmission Date: 20090109
  Serious: Yes (Hospitalization)
  Sender: FDA-Public Use
  Company Number: 163-20785-07031025

PATIENT
  Age: 71 Year
  Sex: Female

DRUGS (11)
  1. THALOMID [Suspect]
     Indication: MULTIPLE MYELOMA
     Dosage: 100 MG, QD, ORAL
     Route: 048
     Dates: start: 20061015, end: 20061209
  2. WELLBUTRIN SR [Concomitant]
  3. ACYCLOVIR [Concomitant]
  4. NADOLOL [Concomitant]
  5. URSO 250 [Concomitant]
  6. ATIVAN [Concomitant]
  7. ZANTAC 150 [Concomitant]
  8. MULTIVITAMIN (MULTIVITAMINS) (TABLETS) [Concomitant]
  9. BENADRYL [Concomitant]
  10. AMBISOME [Concomitant]
  11. IMMUNE GLOBULIN INTRAVENOUS (HUMAN) [Concomitant]

REACTIONS (1)
  - ASPERGILLOSIS [None]
